FAERS Safety Report 7711692-3 (Version None)
Quarter: 2011Q3

REPORT INFORMATION
  Report Type: 
  Country: None (occurrence: None)
  Receive Date: 20110826
  Receipt Date: 20110819
  Transmission Date: 20111222
  Serious: Yes (Hospitalization, Other)
  Sender: FDA-Public Use
  Company Number: US-JNJFOC-20110406914

PATIENT
  Sex: Female

DRUGS (5)
  1. LEVAQUIN [Suspect]
     Indication: BACTERIAL INFECTION
     Route: 048
     Dates: start: 20030101, end: 20070101
  2. LEVAQUIN [Suspect]
     Indication: PRODUCT USED FOR UNKNOWN INDICATION
     Route: 048
  3. CORTICOSTEROIDS [Suspect]
     Indication: SINUSITIS
     Route: 065
  4. CIPROFLOXACIN [Suspect]
     Indication: INFECTION
     Route: 048
  5. CORTICOSTEROIDS [Suspect]
     Indication: INFLAMMATION
     Route: 065

REACTIONS (8)
  - TENOSYNOVITIS [None]
  - ROTATOR CUFF SYNDROME [None]
  - MENTAL DISORDER [None]
  - DRUG INEFFECTIVE [None]
  - TENDON DISORDER [None]
  - BURSITIS [None]
  - TENDON RUPTURE [None]
  - PAIN IN EXTREMITY [None]
